FAERS Safety Report 9703550 (Version 2)
Quarter: 2014Q1

REPORT INFORMATION
  Report Type: Spontaneous
  Country: US (occurrence: US)
  Receive Date: 20131122
  Receipt Date: 20140114
  Transmission Date: 20141002
  Serious: No
  Sender: FDA-Public Use
  Company Number: US-PFIZER INC-2013328937

PATIENT
  Age: 79 Year
  Sex: Male

DRUGS (1)
  1. INLYTA [Suspect]
     Indication: RENAL CANCER
     Dosage: 5 MG, DAILY

REACTIONS (4)
  - Disease progression [Unknown]
  - Renal cancer [Unknown]
  - Haemoptysis [Unknown]
  - Thrombocytopenia [Unknown]
